FAERS Safety Report 13025640 (Version 6)
Quarter: 2017Q2

REPORT INFORMATION
  Report Type: Spontaneous
  Country: US (occurrence: US)
  Receive Date: 20161214
  Receipt Date: 20170612
  Transmission Date: 20170830
  Serious: Yes (Other)
  Sender: FDA-Public Use
  Company Number: PHEH2016US032464

PATIENT
  Sex: Female
  Weight: 81.63 kg

DRUGS (2)
  1. ZOFRAN ODT [Suspect]
     Active Substance: ONDANSETRON HYDROCHLORIDE
     Dosage: 08 MG, Q8H
     Route: 065
     Dates: start: 20140514, end: 201407
  2. ZOFRAN ODT [Suspect]
     Active Substance: ONDANSETRON HYDROCHLORIDE
     Indication: VOMITING IN PREGNANCY
     Dosage: 04 MG, Q4H
     Route: 048
     Dates: start: 20140417, end: 201405

REACTIONS (8)
  - Oligohydramnios [Unknown]
  - Dizziness [Unknown]
  - Emotional distress [Unknown]
  - Premature delivery [Unknown]
  - Product use in unapproved indication [Unknown]
  - Maternal exposure during pregnancy [Unknown]
  - Dehydration [Unknown]
  - Vertigo [Unknown]
